FAERS Safety Report 6925177-5 (Version None)
Quarter: 2010Q3

REPORT INFORMATION
  Report Type: 
  Country: None (occurrence: None)
  Receive Date: 20100816
  Receipt Date: 20100803
  Transmission Date: 20110219
  Serious: Yes (Other)
  Sender: FDA-Public Use
  Company Number: JP-PFIZER INC-2010098253

PATIENT
  Age: 55 Year
  Sex: Female

DRUGS (4)
  1. SOLU-MEDROL [Suspect]
     Indication: GRAFT VERSUS HOST DISEASE
     Dosage: 1 MG/KG, UNK
  2. FK506 [Suspect]
     Indication: GRAFT VERSUS HOST DISEASE
  3. MYCOPHENOLATE MOFETIL [Concomitant]
     Indication: GRAFT VERSUS HOST DISEASE
     Dosage: 1000 -1500MG
  4. METHOTREXATE [Concomitant]

REACTIONS (2)
  - CYTOMEGALOVIRUS TEST POSITIVE [None]
  - PNEUMONIA FUNGAL [None]
